FAERS Safety Report 18503721 (Version 1)
Quarter: 2020Q4

REPORT INFORMATION
  Report Type: Spontaneous
  Country: US (occurrence: US)
  Receive Date: 20201113
  Receipt Date: 20201113
  Transmission Date: 20210114
  Serious: No
  Sender: FDA-Public Use
  Company Number: US-ASTRAZENECA-2020SF49763

PATIENT
  Sex: Male

DRUGS (1)
  1. PRILOSEC OTC [Suspect]
     Active Substance: OMEPRAZOLE MAGNESIUM
     Dosage: OVERDOSE 1 TABLET, TWICE A DAY, ONCE IN THE MORNING AND AT NIGHT
     Route: 048
     Dates: start: 20201022, end: 20201022

REACTIONS (3)
  - Chest discomfort [Recovering/Resolving]
  - Abdominal pain upper [Recovering/Resolving]
  - Overdose [Unknown]

NARRATIVE: CASE EVENT DATE: 202010
